FAERS Safety Report 24052031 (Version 3)
Quarter: 2024Q4

REPORT INFORMATION
  Report Type: Spontaneous
  Country: JP (occurrence: JP)
  Receive Date: 20240704
  Receipt Date: 20241003
  Transmission Date: 20250115
  Serious: Yes (Hospitalization, Disabling, Other)
  Sender: BRISTOL MYERS SQUIBB
  Company Number: JP-ONO-2024JP013964

PATIENT
  Age: 8 Decade
  Sex: Female

DRUGS (1)
  1. OPDIVO [Suspect]
     Active Substance: NIVOLUMAB
     Indication: Transitional cell carcinoma
     Route: 041
     Dates: start: 20240510, end: 20240510

REACTIONS (4)
  - Cardiac arrest [Unknown]
  - Hypothyroidism [Not Recovered/Not Resolved]
  - KL-6 increased [Unknown]
  - Metastases to bone [Unknown]

NARRATIVE: CASE EVENT DATE: 20240524
